FAERS Safety Report 6226875-1 (Version None)
Quarter: 2009Q2

REPORT INFORMATION
  Report Type: 
  Country: None (occurrence: None)
  Receive Date: 20090612
  Receipt Date: 20090602
  Transmission Date: 20091009
  Serious: Yes (Death, Hospitalization)
  Sender: FDA-Public Use
  Company Number: HK-BRISTOL-MYERS SQUIBB COMPANY-14655542

PATIENT
  Age: 73 Year
  Sex: Male

DRUGS (3)
  1. METFORMIN HCL [Suspect]
     Dosage: 1 DOSAGE FORM = 10 TABLETS (500 MG PER TAB). DAILY DOSE: 1 GM, FREQUENCY: 2 IN 1 DAY.
  2. GLICLAZIDE [Concomitant]
  3. PERINDOPRIL ERBUMINE [Concomitant]

REACTIONS (2)
  - METABOLIC ACIDOSIS [None]
  - OVERDOSE [None]
